FAERS Safety Report 14933560 (Version 1)
Quarter: 2018Q2

REPORT INFORMATION
  Report Type: Spontaneous
  Country: FR (occurrence: FR)
  Receive Date: 20180524
  Receipt Date: 20180524
  Transmission Date: 20180711
  Serious: Yes (Other)
  Sender: FDA-Public Use
  Company Number: FR-MERCK KGAA-2048397

PATIENT
  Age: 74 Year
  Sex: Female

DRUGS (1)
  1. NOVOTHYROX [Suspect]
     Active Substance: LEVOTHYROXINE SODIUM
     Indication: PRODUCT USED FOR UNKNOWN INDICATION
     Dates: end: 2017

REACTIONS (20)
  - Discomfort [None]
  - Anxiety [None]
  - Blood thyroid stimulating hormone increased [Recovered/Resolved]
  - Alopecia [Recovering/Resolving]
  - Impaired quality of life [None]
  - Feeling abnormal [None]
  - Impaired work ability [Recovered/Resolved]
  - General physical health deterioration [None]
  - Loss of personal independence in daily activities [Recovered/Resolved]
  - Blood creatinine increased [Not Recovered/Not Resolved]
  - Asthenia [Recovering/Resolving]
  - Glomerular filtration rate decreased [Not Recovered/Not Resolved]
  - Middle insomnia [None]
  - Insomnia [None]
  - Stress [None]
  - Fatigue [None]
  - Thyroxine free increased [Not Recovered/Not Resolved]
  - Chills [None]
  - Mental impairment [None]
  - Disturbance in attention [None]

NARRATIVE: CASE EVENT DATE: 20170116
